FAERS Safety Report 5138570-0 (Version None)
Quarter: 2006Q4

REPORT INFORMATION
  Report Type: 
  Country: None (occurrence: None)
  Receive Date: 20061030
  Receipt Date: 20060315
  Transmission Date: 20070319
  Serious: Yes (Other)
  Sender: FDA-Public Use
  Company Number: US-GLAXOSMITHKLINE-A0597716A

PATIENT
  Age: 9 Year
  Sex: Female

DRUGS (2)
  1. ADVAIR HFA [Suspect]
     Indication: ASTHMA
     Dosage: 1PUFF TWICE PER DAY
     Route: 055
     Dates: start: 20060308
  2. SUDAL [Concomitant]

REACTIONS (3)
  - ASTHMA [None]
  - COUGH [None]
  - PHARMACEUTICAL PRODUCT COMPLAINT [None]
